FAERS Safety Report 4609644-5 (Version None)
Quarter: 2005Q1

REPORT INFORMATION
  Report Type: 
  Country: None (occurrence: None)
  Receive Date: 20050314
  Receipt Date: 20050225
  Transmission Date: 20050727
  Serious: Yes (Death)
  Sender: FDA-Public Use
  Company Number: BUS-032005-009

PATIENT
  Age: 24 Year
  Sex: Male

DRUGS (6)
  1. BUSULFEX (BUSULFAN) [Suspect]
     Indication: ACUTE MYELOID LEUKAEMIA
     Dosage: 192 MG/D (48 MG/DOSE X 4 TIMES) - IV (16 DOSES TOTAL ADMINISTERED)
     Route: 042
     Dates: start: 20020720, end: 20020723
  2. BUSULFEX (BUSULFAN) [Suspect]
     Indication: BONE MARROW CONDITIONING REGIMEN
     Dosage: 192 MG/D (48 MG/DOSE X 4 TIMES) - IV (16 DOSES TOTAL ADMINISTERED)
     Route: 042
     Dates: start: 20020720, end: 20020723
  3. CYCLOPHOSPHAMIDE [Concomitant]
  4. PHENYTOIN SODIUM [Concomitant]
  5. MESNA [Concomitant]
  6. IMMUNOSUPPRESSANTS [Concomitant]

REACTIONS (3)
  - GASTROINTESTINAL DISORDER [None]
  - GRAFT VERSUS HOST DISEASE [None]
  - SKIN DISORDER [None]
